FAERS Safety Report 17264498 (Version 2)
Quarter: 2020Q1

REPORT INFORMATION
  Report Type: Report from Study
  Country: AR (occurrence: AR)
  Receive Date: 20200113
  Receipt Date: 20200116
  Transmission Date: 20200409
  Serious: Yes (Other)
  Sender: FDA-Public Use
  Company Number: PHHY2017AR041681

PATIENT
  Sex: Female

DRUGS (2)
  1. SANDOSTATIN LAR DEPOT [Suspect]
     Active Substance: OCTREOTIDE ACETATE
     Indication: NEOPLASM MALIGNANT
     Dosage: 30 MG, EVERY 22 DAYS (STARTED 10 YEARS AGO)
     Route: 065
  2. SANDOSTATIN LAR DEPOT [Suspect]
     Active Substance: OCTREOTIDE ACETATE
     Dosage: 30 MG, EVERY 22 DAYS (STARTED 10 YEARS AGO)
     Route: 065

REACTIONS (7)
  - Product quality issue [Unknown]
  - Needle issue [Unknown]
  - Metastatic neoplasm [Not Recovered/Not Resolved]
  - Anxiety [Unknown]
  - Malaise [Unknown]
  - Underdose [Unknown]
  - Inappropriate schedule of product administration [Unknown]
